FAERS Safety Report 5323429-6 (Version None)
Quarter: 2007Q2

REPORT INFORMATION
  Report Type: 
  Country: None (occurrence: None)
  Receive Date: 20070514
  Receipt Date: 20070509
  Transmission Date: 20071010
  Serious: Yes (Death)
  Sender: FDA-Public Use
  Company Number: PHBS2007JP07906

PATIENT
  Age: 45 Year
  Sex: Male

DRUGS (1)
  1. NEORAL [Suspect]
     Indication: PEMPHIGUS
     Route: 065

REACTIONS (1)
  - NOCARDIOSIS [None]
